FAERS Safety Report 13055898 (Version 16)
Quarter: 2020Q1

REPORT INFORMATION
  Report Type: Spontaneous
  Country: US (occurrence: US)
  Receive Date: 20161222
  Receipt Date: 20200211
  Transmission Date: 20200409
  Serious: Yes (Hospitalization, Other)
  Sender: FDA-Public Use
  Company Number: US-PFIZER INC-2016581058

PATIENT
  Age: 76 Year
  Sex: Female
  Weight: 77 kg

DRUGS (8)
  1. IBRANCE [Suspect]
     Active Substance: PALBOCICLIB
     Dosage: 125 MG, CYCLIC (DAY 1 TO DAY 21, EVERY 28 DAYS)
     Route: 048
  2. IBRANCE [Suspect]
     Active Substance: PALBOCICLIB
     Dosage: 125 MG, CYCLIC (DAY 1 TO DAY 21, EVERY 28 DAYS)
     Route: 048
  3. IBRANCE [Suspect]
     Active Substance: PALBOCICLIB
     Dosage: 125 MG, CYCLIC (DAY 1 TO DAY 21, EVERY 28 DAYS)
     Route: 048
  4. IBRANCE [Suspect]
     Active Substance: PALBOCICLIB
     Dosage: 125 MG, CYCLIC ((DAILY X 3 WEEKS THEN OFF 1 WEEK)
     Route: 048
     Dates: start: 20180824
  5. IBRANCE [Suspect]
     Active Substance: PALBOCICLIB
     Dosage: 125 MG, CYCLIC (DAY 1 TO DAY 21, EVERY 28 DAYS)
     Route: 048
  6. IBRANCE [Suspect]
     Active Substance: PALBOCICLIB
     Dosage: 125 MG, CYCLIC (DAY 1 TO DAY 21, EVERY 28 DAYS)
     Route: 048
  7. IBRANCE [Suspect]
     Active Substance: PALBOCICLIB
     Indication: BREAST CANCER METASTATIC
     Dosage: 125 MG, CYCLIC (DAY 1 TO DAY 21, EVERY 28 DAYS)
     Route: 048
     Dates: start: 20161210
  8. IBRANCE [Suspect]
     Active Substance: PALBOCICLIB
     Dosage: 125 MG, CYCLIC (DAY 1 TO DAY 21, EVERY 28 DAYS)
     Route: 048

REACTIONS (28)
  - Diabetes mellitus [Unknown]
  - Cough [Unknown]
  - Sinus congestion [Unknown]
  - Burning sensation [Unknown]
  - Dyspepsia [Not Recovered/Not Resolved]
  - Diarrhoea [Unknown]
  - Localised infection [Unknown]
  - Blood glucose decreased [Unknown]
  - Fatigue [Unknown]
  - Arthralgia [Not Recovered/Not Resolved]
  - Deep vein thrombosis [Unknown]
  - Blood potassium decreased [Unknown]
  - Myalgia [Not Recovered/Not Resolved]
  - Condition aggravated [Not Recovered/Not Resolved]
  - Blood iron decreased [Not Recovered/Not Resolved]
  - Product dose omission [Unknown]
  - Oropharyngeal pain [Unknown]
  - Dizziness [Unknown]
  - Gait disturbance [Unknown]
  - Red blood cell count decreased [Unknown]
  - Peripheral swelling [Not Recovered/Not Resolved]
  - Fall [Not Recovered/Not Resolved]
  - Eye haemorrhage [Unknown]
  - Iron deficiency anaemia [Unknown]
  - Hypersomnia [Unknown]
  - Pain in extremity [Unknown]
  - Nasal discomfort [Recovering/Resolving]
  - White blood cell count decreased [Unknown]

NARRATIVE: CASE EVENT DATE: 201612
